FAERS Safety Report 17002831 (Version 1)
Quarter: 2019Q4

REPORT INFORMATION
  Report Type: Spontaneous
  Country: JP (occurrence: JP)
  Receive Date: 20191107
  Receipt Date: 20191107
  Transmission Date: 20200122
  Serious: Yes (Death, Other)
  Sender: FDA-Public Use
  Company Number: JP-TEVA-2019-JP-1117037

PATIENT
  Age: 8 Decade
  Sex: Male

DRUGS (8)
  1. AZILECT [Suspect]
     Active Substance: RASAGILINE MESYLATE
     Indication: PARKINSON^S DISEASE
     Route: 048
     Dates: end: 20190927
  2. STALEVO [Concomitant]
     Active Substance: CARBIDOPA\ENTACAPONE\LEVODOPA
     Route: 065
  3. BARACLUDE [Concomitant]
     Active Substance: ENTECAVIR
     Route: 065
  4. TRERIEF [Concomitant]
     Active Substance: ZONISAMIDE
     Route: 065
  5. GASCON [Concomitant]
     Active Substance: DIMETHICONE
     Route: 065
  6. CABASER [Concomitant]
     Active Substance: CABERGOLINE
     Route: 065
  7. ROZEREM [Concomitant]
     Active Substance: RAMELTEON
     Route: 065
  8. MOSAPRIDE CITRATE [Concomitant]
     Active Substance: MOSAPRIDE CITRATE
     Route: 065

REACTIONS (4)
  - Hypophagia [Fatal]
  - Decreased appetite [Unknown]
  - Hyperthermia [Fatal]
  - Dyspnoea [Fatal]
